FAERS Safety Report 25112777 (Version 1)
Quarter: 2025Q1

REPORT INFORMATION
  Report Type: Spontaneous
  Country: CN (occurrence: CN)
  Receive Date: 20250324
  Receipt Date: 20250324
  Transmission Date: 20250409
  Serious: Yes (Hospitalization, Other)
  Sender: PFIZER
  Company Number: CN-PFIZER INC-PV202500033718

PATIENT
  Age: 62 Year
  Sex: Male
  Weight: 85 kg

DRUGS (5)
  1. INLYTA [Suspect]
     Active Substance: AXITINIB
     Indication: Renal neoplasm
     Dosage: 5 MG, 2X/DAY
     Route: 048
     Dates: start: 20241211, end: 20250307
  2. TORIPALIMAB [Concomitant]
     Active Substance: TORIPALIMAB
     Indication: Immunomodulatory therapy
     Route: 041
     Dates: start: 20241211
  3. TORIPALIMAB [Concomitant]
     Active Substance: TORIPALIMAB
     Route: 041
     Dates: start: 20250102
  4. TORIPALIMAB [Concomitant]
     Active Substance: TORIPALIMAB
     Route: 041
     Dates: start: 20250123
  5. TORIPALIMAB [Concomitant]
     Active Substance: TORIPALIMAB
     Route: 041
     Dates: start: 20250213

REACTIONS (7)
  - Hepatic failure [Recovering/Resolving]
  - Drug-induced liver injury [Recovering/Resolving]
  - Gallbladder enlargement [Unknown]
  - Pyrexia [Recovered/Resolved]
  - Hepatic cyst [Unknown]
  - Cholelithiasis [Unknown]
  - Gallbladder cholesterolosis [Unknown]

NARRATIVE: CASE EVENT DATE: 20250213
